FAERS Safety Report 13790324 (Version 1)
Quarter: 2017Q3

REPORT INFORMATION
  Report Type: Spontaneous
  Country: ZA (occurrence: ZA)
  Receive Date: 20170725
  Receipt Date: 20170725
  Transmission Date: 20171127
  Serious: Yes (Death, Other)
  Sender: FDA-Public Use
  Company Number: ZA-MYLANLABS-2017M1042773

PATIENT

DRUGS (6)
  1. BILOCOR [Suspect]
     Active Substance: BISOPROLOL FUMARATE
     Indication: HYPERTENSION
     Dosage: 5 MG, UNK
     Route: 048
     Dates: end: 20170709
  2. TOPZOLE [Suspect]
     Active Substance: PANTOPRAZOLE SODIUM
     Indication: ULCER
     Dosage: 40 MG, UNK
     Route: 048
     Dates: end: 20170709
  3. ZOPIVANE [Suspect]
     Active Substance: ZOPICLONE
     Indication: INSOMNIA
     Dosage: 7.5 MG, UNK
     Route: 048
     Dates: end: 20170709
  4. LOMANOR [Suspect]
     Active Substance: AMLODIPINE BESYLATE
     Indication: HYPERTENSION
     Dosage: 10 MG, UNK
     Route: 048
     Dates: end: 20170709
  5. OXYBUTYNIN MYLAN 5 MG TABLETTI [Suspect]
     Active Substance: OXYBUTYNIN
     Indication: URINARY INCONTINENCE
     Dosage: 5 MG, UNK
     Route: 048
     Dates: end: 20170709
  6. AZOR [Suspect]
     Active Substance: AMLODIPINE BESYLATE\OLMESARTAN MEDOXOMIL
     Indication: STRESS
     Dosage: 0.25 MG, UNK
     Route: 048
     Dates: end: 20170709

REACTIONS (1)
  - Pneumonia [Fatal]
